FAERS Safety Report 5505390-4 (Version None)
Quarter: 2007Q4

REPORT INFORMATION
  Report Type: 
  Country: None (occurrence: None)
  Receive Date: 20071102
  Receipt Date: 20071015
  Transmission Date: 20080405
  Serious: No
  Sender: FDA-Public Use
  Company Number: US-JNJFOC-20070702673

PATIENT
  Sex: Male

DRUGS (6)
  1. INVEGA [Suspect]
     Indication: IMPULSIVE BEHAVIOUR
     Route: 048
  2. INVEGA [Suspect]
     Indication: AGGRESSION
     Route: 048
  3. INVEGA [Suspect]
     Indication: BIPOLAR DISORDER
     Route: 048
  4. DEPAKOTE ER [Concomitant]
     Indication: BIPOLAR DISORDER
  5. DEPAKOTE ER [Concomitant]
     Indication: CONVULSION
  6. ZYPREXA [Concomitant]

REACTIONS (3)
  - DISTURBANCE IN SOCIAL BEHAVIOUR [None]
  - MANIA [None]
  - RESTLESSNESS [None]
